FAERS Safety Report 9299403 (Version 2)
Quarter: 2013Q4

REPORT INFORMATION
  Report Type: Spontaneous
  Country: US (occurrence: US)
  Receive Date: 20130520
  Receipt Date: 20131108
  Transmission Date: 20140711
  Serious: Yes (Hospitalization, Other)
  Sender: FDA-Public Use
  Company Number: US-B.I. PHARMACEUTICALS,INC./RIDGEFIELD-2013-BI-13949BP

PATIENT
  Sex: Male
  Weight: 72.57 kg

DRUGS (10)
  1. PRADAXA [Suspect]
     Indication: ANTICOAGULANT THERAPY
     Dosage: 300 MG
     Route: 048
     Dates: start: 20110901, end: 20110908
  2. PRADAXA [Suspect]
     Indication: ATRIAL FIBRILLATION
  3. PRADAXA [Suspect]
     Indication: DEEP VEIN THROMBOSIS
  4. DIGOXIN [Concomitant]
     Route: 048
  5. HYDROXYCHLOROQUINE [Concomitant]
     Route: 048
  6. NORCO [Concomitant]
     Indication: PAIN
  7. PREDNISONE [Concomitant]
     Dosage: 7.5 MG
  8. TIKOSYN [Concomitant]
     Dosage: 0.25 MG
     Route: 048
  9. ULORIC [Concomitant]
     Dosage: 40 MG
     Route: 048
  10. METOPROLOL [Concomitant]
     Dosage: 25 MG
     Route: 048

REACTIONS (5)
  - Upper gastrointestinal haemorrhage [Recovered/Resolved]
  - Haemorrhagic anaemia [Unknown]
  - Coagulopathy [Recovered/Resolved]
  - Toxicity to various agents [Unknown]
  - Renal failure acute [Recovered/Resolved]
